FAERS Safety Report 9981718 (Version 1)
Quarter: 2014Q1

REPORT INFORMATION
  Report Type: Spontaneous
  Country: US (occurrence: None)
  Receive Date: 20140131
  Receipt Date: 20140131
  Transmission Date: 20141002
  Serious: Yes (Other)
  Sender: FDA-Public Use
  Company Number: 095915

PATIENT
  Sex: 0

DRUGS (2)
  1. KEPPRA [Suspect]
  2. TEGRETOL [Suspect]

REACTIONS (3)
  - Partial seizures [None]
  - Brain operation [None]
  - Drug ineffective [None]
